FAERS Safety Report 23617044 (Version 2)
Quarter: 2025Q4

REPORT INFORMATION
  Report Type: Spontaneous
  Country: EU (occurrence: EU)
  Receive Date: 20240311
  Receipt Date: 20251201
  Transmission Date: 20260117
  Serious: Yes (Other)
  Sender: SANDOZ
  Company Number: EU-SA-SAC20220509000347

PATIENT
  Age: 57 Year
  Sex: Female
  Weight: 71 kg

DRUGS (35)
  1. CARFILZOMIB [Suspect]
     Active Substance: CARFILZOMIB
     Indication: Plasma cell myeloma refractory
     Dosage: UNK
     Route: 065
  2. DEXAMETHASONE [Suspect]
     Active Substance: DEXAMETHASONE
     Dosage: 40 MG, QW
     Route: 065
     Dates: start: 20220120, end: 20220210
  3. DEXAMETHASONE [Suspect]
     Active Substance: DEXAMETHASONE
     Dosage: 40 MG, QW
     Route: 065
     Dates: start: 20220217, end: 20220310
  4. DEXAMETHASONE [Suspect]
     Active Substance: DEXAMETHASONE
     Dosage: 40 MG, QW
     Route: 065
     Dates: start: 20220317
  5. DEXAMETHASONE [Suspect]
     Active Substance: DEXAMETHASONE
     Dosage: 40 MG, QW
     Route: 065
     Dates: start: 20220414
  6. DEXAMETHASONE [Suspect]
     Active Substance: DEXAMETHASONE
     Dosage: 40 MG, QW
     Route: 065
     Dates: start: 20220512
  7. DEXAMETHASONE [Suspect]
     Active Substance: DEXAMETHASONE
     Dosage: 40 MG, QW
     Route: 065
     Dates: start: 20220609
  8. DEXAMETHASONE [Suspect]
     Active Substance: DEXAMETHASONE
     Dosage: 40 MG, QW
     Route: 065
     Dates: start: 20220707
  9. DEXAMETHASONE [Suspect]
     Active Substance: DEXAMETHASONE
     Dosage: 40 MG, QW
     Route: 065
  10. DEXAMETHASONE [Suspect]
     Active Substance: DEXAMETHASONE
     Dosage: 40 MG, BIW
     Route: 065
     Dates: start: 20211223
  11. DEXAMETHASONE [Suspect]
     Active Substance: DEXAMETHASONE
     Indication: Plasma cell myeloma
     Dosage: 80 MG, QW (40 MG, BIW)
     Route: 065
     Dates: start: 20211125, end: 20211226
  12. DEXAMETHASONE [Suspect]
     Active Substance: DEXAMETHASONE
     Indication: Plasma cell myeloma refractory
     Dosage: 80 MG, QW (40 MG, BIW)
     Route: 065
     Dates: start: 20211223, end: 20220113
  13. ISATUXIMAB [Suspect]
     Active Substance: ISATUXIMAB
     Dosage: 10 MG, BIW
     Route: 065
     Dates: start: 20220217, end: 20220303
  14. ISATUXIMAB [Suspect]
     Active Substance: ISATUXIMAB
     Dosage: 10 MG/KG, BIW
     Route: 065
     Dates: start: 20220217, end: 20220303
  15. ISATUXIMAB [Suspect]
     Active Substance: ISATUXIMAB
     Indication: Plasma cell myeloma refractory
     Dosage: 10 MG/KG, QW
     Route: 065
     Dates: start: 20211125
  16. ISATUXIMAB [Suspect]
     Active Substance: ISATUXIMAB
     Dosage: 10 MG/KG, QW
     Route: 065
     Dates: start: 20211223, end: 20220106
  17. ISATUXIMAB [Suspect]
     Active Substance: ISATUXIMAB
     Dosage: 10 MG/KG, QW
     Route: 065
  18. ISATUXIMAB [Suspect]
     Active Substance: ISATUXIMAB
     Dosage: 10 MG/KG, QW
     Route: 065
  19. ISATUXIMAB [Suspect]
     Active Substance: ISATUXIMAB
     Dosage: 10 MG/KG, BIW
     Route: 065
     Dates: start: 20220217
  20. ISATUXIMAB [Suspect]
     Active Substance: ISATUXIMAB
     Indication: Plasma cell myeloma
     Dosage: 20 MG/KG, QW (10 MG/KG, BIW)
     Route: 065
     Dates: start: 20220317
  21. ISATUXIMAB [Suspect]
     Active Substance: ISATUXIMAB
     Dosage: 20 MG/KG, QW (10 MG/KG, BIW)
     Route: 065
     Dates: start: 20220414
  22. ISATUXIMAB [Suspect]
     Active Substance: ISATUXIMAB
     Dosage: 20 MG/KG, QW (10 MG/KG, BIW)
     Route: 065
     Dates: start: 20220512
  23. ISATUXIMAB [Suspect]
     Active Substance: ISATUXIMAB
     Dosage: 20 MG/KG, QW (10 MG/KG, BIW)
     Route: 065
     Dates: start: 20220609
  24. ISATUXIMAB [Suspect]
     Active Substance: ISATUXIMAB
     Dosage: 20 MG/KG, QW (10 MG/KG, BIW)
     Route: 065
     Dates: start: 20220707
  25. ISATUXIMAB [Suspect]
     Active Substance: ISATUXIMAB
     Dosage: 20 MG/KG, QW, (10 MG/KG, BIW)
     Route: 065
     Dates: start: 20220120, end: 20220203
  26. LENALIDOMIDE [Suspect]
     Active Substance: LENALIDOMIDE
     Indication: Plasma cell myeloma
     Dosage: UNK
     Route: 065
  27. POMALIDOMIDE [Suspect]
     Active Substance: POMALIDOMIDE
     Indication: Plasma cell myeloma
     Dosage: 4 MG, QD
     Route: 065
     Dates: start: 20220512
  28. POMALIDOMIDE [Suspect]
     Active Substance: POMALIDOMIDE
     Dosage: 4 MG, QD
     Route: 065
     Dates: start: 20211125, end: 20211216
  29. POMALIDOMIDE [Suspect]
     Active Substance: POMALIDOMIDE
     Dosage: 4 MG, QD
     Route: 065
     Dates: start: 20220120, end: 20220209
  30. POMALIDOMIDE [Suspect]
     Active Substance: POMALIDOMIDE
     Dosage: 4 MG, QD
     Route: 065
     Dates: start: 20220217
  31. POMALIDOMIDE [Suspect]
     Active Substance: POMALIDOMIDE
     Dosage: 4 MG, QD
     Route: 065
     Dates: start: 20220317
  32. POMALIDOMIDE [Suspect]
     Active Substance: POMALIDOMIDE
     Dosage: 4 MG, QD
     Route: 065
     Dates: start: 20220414
  33. POMALIDOMIDE [Suspect]
     Active Substance: POMALIDOMIDE
     Dosage: 4 MG, QD
     Route: 065
     Dates: start: 20220609
  34. POMALIDOMIDE [Suspect]
     Active Substance: POMALIDOMIDE
     Dosage: 4 MG, QD
     Route: 065
     Dates: start: 20220707
  35. POMALIDOMIDE [Suspect]
     Active Substance: POMALIDOMIDE
     Dosage: 6 MG, (3 MG, BIW)
     Route: 065
     Dates: start: 20211223, end: 20220119

REACTIONS (5)
  - Neutropenia [Recovered/Resolved]
  - Thrombocytopenia [Not Recovered/Not Resolved]
  - Neutropenia [Recovered/Resolved]
  - Neutropenia [Recovered/Resolved]
  - Chills [Recovered/Resolved]

NARRATIVE: CASE EVENT DATE: 20211125
